FAERS Safety Report 4556895-4 (Version None)
Quarter: 2005Q1

REPORT INFORMATION
  Report Type: 
  Country: None (occurrence: None)
  Receive Date: 20050118
  Receipt Date: 20050110
  Transmission Date: 20050727
  Serious: Yes (Hospitalization, Other)
  Sender: FDA-Public Use
  Company Number: 2004020007

PATIENT
  Age: 70 Year
  Sex: Male
  Weight: 80 kg

DRUGS (6)
  1. TAHOR (ATORVASTATIN) [Suspect]
     Indication: DYSLIPIDAEMIA
     Dosage: 10 MG (1 IN 1 D), ORAL
     Route: 048
     Dates: start: 20031218, end: 20040101
  2. PHENYTOIN [Suspect]
     Indication: PARTIAL SEIZURES
     Dosage: 300 MG (1 IN 1 D), ORAL
     Route: 048
     Dates: start: 19630101
  3. LISINOPRIL [Concomitant]
  4. BUMETANIDE [Concomitant]
  5. ALL OTHER THERAPEUTIC PRODUCTS (ALL OTHER THERAPEUTIC PRODUCTS) [Concomitant]
  6. BROMAZEPAM (BROMAZEPAM) [Concomitant]

REACTIONS (7)
  - ANTICONVULSANT DRUG LEVEL ABOVE THERAPEUTIC [None]
  - BALANCE DISORDER [None]
  - CONDITION AGGRAVATED [None]
  - DRUG INTERACTION [None]
  - EPILEPSY [None]
  - TREATMENT NONCOMPLIANCE [None]
  - TREMOR [None]
